FAERS Safety Report 9144133 (Version 1)
Quarter: 2013Q1

REPORT INFORMATION
  Report Type: Report from Study
  Country: US (occurrence: US)
  Receive Date: 20130306
  Receipt Date: 20130306
  Transmission Date: 20140127
  Serious: Yes (Hospitalization)
  Sender: FDA-Public Use
  Company Number: US-GLAXOSMITHKLINE-Z0001921A

PATIENT
  Age: 57 Year
  Sex: Female
  Weight: 68.5 kg

DRUGS (5)
  1. PAZOPANIB [Suspect]
     Indication: OVARIAN CANCER
     Dosage: 800MG PER DAY
     Dates: start: 20090918
  2. ARMOUR THYROID [Concomitant]
     Indication: HYPOTHYROIDISM
     Dosage: 30MG FIVE TIMES PER DAY
     Route: 048
     Dates: start: 2000
  3. TRAZODONE [Concomitant]
     Dosage: 50MG PER DAY
     Route: 048
     Dates: start: 20100115
  4. CYTOMEL [Concomitant]
     Dosage: 50MG PER DAY
     Route: 048
     Dates: start: 20090918
  5. HYDROCODONE [Concomitant]
     Indication: PAIN
     Dosage: 1TAB AS REQUIRED
     Route: 048
     Dates: start: 20091003, end: 20091005

REACTIONS (7)
  - Gastrointestinal haemorrhage [Recovered/Resolved]
  - Pyrexia [Recovered/Resolved]
  - Nausea [Recovered/Resolved]
  - Vomiting [Recovered/Resolved]
  - Fatigue [Recovered/Resolved]
  - Decreased appetite [Recovered/Resolved]
  - Rash [Recovered/Resolved]
